FAERS Safety Report 18764163 (Version 1)
Quarter: 2021Q1

REPORT INFORMATION
  Report Type: Spontaneous
  Country: TR (occurrence: TR)
  Receive Date: 20210120
  Receipt Date: 20210120
  Transmission Date: 20210419
  Serious: Yes (Other)
  Sender: FDA-Public Use
  Company Number: NVSC2021TR012073

PATIENT

DRUGS (2)
  1. HYDROXYCHLOROQUINE SULFATE. [Suspect]
     Active Substance: HYDROXYCHLOROQUINE SULFATE
     Dosage: 400 MG, QD(IN THE DAYS TWO TO FIVE)
     Route: 065
  2. HYDROXYCHLOROQUINE SULFATE. [Suspect]
     Active Substance: HYDROXYCHLOROQUINE SULFATE
     Indication: COVID-19
     Dosage: 400 MG, BID(IN THE DAY ONE)
     Route: 065

REACTIONS (2)
  - Electrocardiogram QT prolonged [Unknown]
  - Product use in unapproved indication [Unknown]
